FAERS Safety Report 10448964 (Version 1)
Quarter: 2014Q3

REPORT INFORMATION
  Report Type: Spontaneous
  Country: US (occurrence: US)
  Receive Date: 20140912
  Receipt Date: 20140912
  Transmission Date: 20150326
  Serious: Yes (Death)
  Sender: FDA-Public Use
  Company Number: US-BRISTOL-MYERS SQUIBB COMPANY-21385711

PATIENT
  Age: 14 Year
  Sex: Male

DRUGS (11)
  1. VALPROIC ACID. [Concomitant]
     Active Substance: VALPROIC ACID
  2. CLONIDINE. [Concomitant]
     Active Substance: CLONIDINE
  3. SERTRALINE [Concomitant]
     Active Substance: SERTRALINE HYDROCHLORIDE
  4. APAP [Concomitant]
     Active Substance: ACETAMINOPHEN
  5. QUETIAPINE [Concomitant]
     Active Substance: QUETIAPINE
  6. MELOXICAM. [Concomitant]
     Active Substance: MELOXICAM
  7. PENICILLIN [Concomitant]
     Active Substance: PENICILLIN
  8. ABILIFY [Suspect]
     Active Substance: ARIPIPRAZOLE
  9. DIPHENHYDRAMINE [Concomitant]
     Active Substance: DIPHENHYDRAMINE
  10. LISDEXAMFETAMINE DIMESYLATE [Concomitant]
     Active Substance: LISDEXAMFETAMINE DIMESYLATE
  11. CODEINE [Concomitant]
     Active Substance: CODEINE

REACTIONS (1)
  - Tooth abscess [Fatal]
